FAERS Safety Report 11803969 (Version 3)
Quarter: 2016Q1

REPORT INFORMATION
  Report Type: Spontaneous
  Country: US (occurrence: US)
  Receive Date: 20151204
  Receipt Date: 20160323
  Transmission Date: 20160525
  Serious: Yes (Disabling)
  Sender: FDA-Public Use
  Company Number: US-ASTRAZENECA-2013SE14955

PATIENT
  Age: 60 Year
  Sex: Female
  Weight: 81.6 kg

DRUGS (16)
  1. VENLAFAXINE [Concomitant]
     Active Substance: VENLAFAXINE HYDROCHLORIDE
  2. ETODOLAC. [Concomitant]
     Active Substance: ETODOLAC
  3. ZYRTEC [Concomitant]
     Active Substance: CETIRIZINE HYDROCHLORIDE
  4. ATENOLOL. [Concomitant]
     Active Substance: ATENOLOL
     Indication: HYPERTENSION
     Dates: start: 200606
  5. FELODIPINEEXTENDED-RELEASE TABLETS [Concomitant]
     Active Substance: FELODIPINE
  6. EFFEXOR [Concomitant]
     Active Substance: VENLAFAXINE HYDROCHLORIDE
  7. CRESTOR [Suspect]
     Active Substance: ROSUVASTATIN CALCIUM
     Indication: BLOOD CHOLESTEROL INCREASED
     Route: 048
     Dates: start: 200606
  8. PREDNISONE. [Concomitant]
     Active Substance: PREDNISONE
     Indication: ARTHRALGIA
  9. CRESTOR [Suspect]
     Active Substance: ROSUVASTATIN CALCIUM
     Indication: BLOOD CHOLESTEROL INCREASED
     Route: 048
     Dates: start: 200906
  10. LISINOPRIL. [Concomitant]
     Active Substance: LISINOPRIL
  11. COZAAR [Concomitant]
     Active Substance: LOSARTAN POTASSIUM
  12. HCTZ [Concomitant]
     Active Substance: HYDROCHLOROTHIAZIDE
  13. SIMVASTATIN. [Concomitant]
     Active Substance: SIMVASTATIN
     Dates: start: 20070306
  14. OXYBUTYNIN CHLORIDE. [Concomitant]
     Active Substance: OXYBUTYNIN CHLORIDE
  15. CRESTOR [Suspect]
     Active Substance: ROSUVASTATIN CALCIUM
     Indication: BLOOD CHOLESTEROL INCREASED
     Route: 048
     Dates: start: 20111021
  16. ISONIAZID. [Concomitant]
     Active Substance: ISONIAZID

REACTIONS (13)
  - Renal failure [Not Recovered/Not Resolved]
  - Major depression [Not Recovered/Not Resolved]
  - Obesity [Unknown]
  - Blood triglycerides increased [Unknown]
  - Gestational diabetes [Unknown]
  - Essential hypertension [Not Recovered/Not Resolved]
  - Insomnia [Unknown]
  - Muscle spasms [Unknown]
  - Chronic kidney disease [Not Recovered/Not Resolved]
  - Type 2 diabetes mellitus [Not Recovered/Not Resolved]
  - Coronary artery disease [Unknown]
  - Hepatic cirrhosis [Not Recovered/Not Resolved]
  - Liver disorder [Unknown]

NARRATIVE: CASE EVENT DATE: 2006
